FAERS Safety Report 6631186-6 (Version None)
Quarter: 2010Q1

REPORT INFORMATION
  Report Type: 
  Country: None (occurrence: None)
  Receive Date: 20100309
  Receipt Date: 20100224
  Transmission Date: 20100710
  Serious: Yes (Other)
  Sender: FDA-Public Use
  Company Number: 1000011274

PATIENT
  Sex: Female

DRUGS (5)
  1. CITALOPRAM HYDROBROMIDE [Suspect]
     Indication: ANXIETY
     Dosage: 10-15 MG
  2. CITALOPRAM HYDROBROMIDE [Suspect]
     Indication: DEPRESSION
     Dosage: 10-15 MG
  3. CITALOPRAM HYDROBROMIDE [Suspect]
     Indication: SOCIAL PHOBIA
     Dosage: 10-15 MG
  4. RITALIN [Concomitant]
  5. CYPROTERONE  ACETATE [Concomitant]

REACTIONS (3)
  - HYPERHIDROSIS [None]
  - URINE OUTPUT INCREASED [None]
  - WEIGHT INCREASED [None]
